FAERS Safety Report 6710748-1 (Version None)
Quarter: 2010Q2

REPORT INFORMATION
  Report Type: 
  Country: None (occurrence: None)
  Receive Date: 20100504
  Receipt Date: 20100504
  Transmission Date: 20101027
  Serious: Yes (Death)
  Sender: FDA-Public Use
  Company Number: None

PATIENT
  Age: 54 Year
  Sex: Female
  Weight: 43.5453 kg

DRUGS (1)
  1. LOVENOX [Suspect]
     Indication: COAGULOPATHY
     Dosage: 45 MG ONCE DAILY IM
     Route: 030

REACTIONS (1)
  - RETROPERITONEAL HAEMORRHAGE [None]
